FAERS Safety Report 17617171 (Version 1)
Quarter: 2020Q2

REPORT INFORMATION
  Report Type: Spontaneous
  Country: US (occurrence: US)
  Receive Date: 20200402
  Receipt Date: 20200402
  Transmission Date: 20200713
  Serious: No
  Sender: FDA-Public Use
  Company Number: US-TEIKOKU PHARMA USA-TPU2020-00173

PATIENT
  Sex: Female
  Weight: 68.55 kg

DRUGS (8)
  1. VITAMIN D [Concomitant]
     Active Substance: VITAMIN D NOS
  2. MECLIZINE HCL [Concomitant]
     Active Substance: MECLIZINE HYDROCHLORIDE
  3. ASPIRIN. [Concomitant]
     Active Substance: ASPIRIN
  4. NITROGLYCERIN SL [Concomitant]
     Active Substance: NITROGLYCERIN
  5. LIDOCAINE PATCH [Suspect]
     Active Substance: LIDOCAINE
     Indication: PAIN
     Dosage: 1 PATCH ON LEG. 1 PATCH ON HIP, 2 PATCHES ON BACK DAILY
     Route: 061
     Dates: start: 201701
  6. MULTI-VIT TABLET [Concomitant]
  7. BACLOFEN. [Concomitant]
     Active Substance: BACLOFEN
  8. HYDROCODONE BITARTRATE AND ACETAMINOPHEN [Concomitant]
     Active Substance: ACETAMINOPHEN\HYDROCODONE BITARTRATE
     Dosage: 10/325MG

REACTIONS (1)
  - Incorrect dose administered [Unknown]
